FAERS Safety Report 22519588 (Version 1)
Quarter: 2023Q2

REPORT INFORMATION
  Report Type: Spontaneous
  Country: US (occurrence: None)
  Receive Date: 20230602
  Receipt Date: 20230602
  Transmission Date: 20230721
  Serious: No
  Sender: FDA-Public Use
  Company Number: None

PATIENT
  Sex: 0

DRUGS (2)
  1. ERTAPENEM [Suspect]
     Active Substance: ERTAPENEM
  2. MEROPENEM [Suspect]
     Active Substance: MEROPENEM

REACTIONS (2)
  - Product packaging confusion [None]
  - Product name confusion [None]

NARRATIVE: CASE EVENT DATE: 20230601
